FAERS Safety Report 10663831 (Version 1)
Quarter: 2014Q4

REPORT INFORMATION
  Report Type: Spontaneous
  Country: US (occurrence: US)
  Receive Date: 20141219
  Receipt Date: 20141219
  Transmission Date: 20150529
  Serious: No
  Sender: FDA-Public Use
  Company Number: US-009507513-1412USA008560

PATIENT
  Age: 67 Year
  Sex: Female

DRUGS (21)
  1. GAMUNEX [Concomitant]
     Active Substance: HUMAN IMMUNOGLOBULIN G
     Route: 042
  2. ASTEPRO [Concomitant]
     Active Substance: AZELASTINE HYDROCHLORIDE
  3. BENADRYL [Concomitant]
     Active Substance: DIPHENHYDRAMINE HYDROCHLORIDE
  4. VITAMINS (UNSPECIFIED) [Concomitant]
     Active Substance: VITAMINS
  5. CRANBERRY. [Concomitant]
     Active Substance: CRANBERRY
  6. DIMETHYL SULFONE (+) GLUCOSAMINE [Concomitant]
  7. TEA [Concomitant]
     Active Substance: TEA LEAF
  8. DONEPEZIL HYDROCHLORIDE. [Concomitant]
     Active Substance: DONEPEZIL HYDROCHLORIDE
  9. LEVOTHYROXINE SODIUM. [Concomitant]
     Active Substance: LEVOTHYROXINE SODIUM
  10. TYLENOL [Concomitant]
     Active Substance: ACETAMINOPHEN
  11. CALCIUM (UNSPECIFIED) [Concomitant]
     Active Substance: CALCIUM
  12. NOXAFIL [Suspect]
     Active Substance: POSACONAZOLE
     Indication: BRONCHOPULMONARY ASPERGILLOSIS
     Dosage: 100 MG, BID
     Route: 048
     Dates: start: 201411, end: 20141216
  13. LYRICA [Concomitant]
     Active Substance: PREGABALIN
  14. SCIENCE BASED HEALTH MACULAR PROTECT [Concomitant]
  15. BIOTAN BASOSAN [Concomitant]
  16. AVONEX [Concomitant]
     Active Substance: INTERFERON BETA-1A
  17. ESCITALOPRAM [Concomitant]
     Active Substance: ESCITALOPRAM OXALATE
  18. OMEGA-3 ACIDS [Concomitant]
     Active Substance: OMEGA-3 FATTY ACIDS
  19. SINGULAIR [Concomitant]
     Active Substance: MONTELUKAST SODIUM
  20. BACOPA [Concomitant]
  21. ASHWAGANDHA [Concomitant]
     Active Substance: HERBALS

REACTIONS (1)
  - Blister [Not Recovered/Not Resolved]

NARRATIVE: CASE EVENT DATE: 20141213
